FAERS Safety Report 24188063 (Version 2)
Quarter: 2025Q1

REPORT INFORMATION
  Report Type: Spontaneous
  Country: US (occurrence: US)
  Receive Date: 20240808
  Receipt Date: 20250101
  Transmission Date: 20250409
  Serious: No
  Sender: BRISTOL-MYERS SQUIBB COMPANY
  Company Number: US-BRISTOL-MYERS SQUIBB COMPANY-2024-124712

PATIENT
  Age: 81 Year
  Sex: Female
  Weight: 66.22 kg

DRUGS (1)
  1. REVLIMID [Suspect]
     Active Substance: LENALIDOMIDE
     Indication: Diffuse large B-cell lymphoma
     Dosage: FREQUENCY: ONCE DAILY FOR 14 DAYS, THEN 14 DAYS OFF
     Route: 048

REACTIONS (3)
  - Neutrophil count decreased [Unknown]
  - Off label use [Unknown]
  - Rash [Unknown]
